FAERS Safety Report 22212038 (Version 1)
Quarter: 2023Q2

REPORT INFORMATION
  Report Type: Spontaneous
  Country: US (occurrence: US)
  Receive Date: 20230414
  Receipt Date: 20230414
  Transmission Date: 20230721
  Serious: Yes (Death, Other)
  Sender: FDA-Public Use
  Company Number: US-AMGEN-USASP2023063508

PATIENT
  Age: 62 Year
  Sex: Male

DRUGS (3)
  1. BLINCYTO [Suspect]
     Active Substance: BLINATUMOMAB
     Indication: Myeloproliferative neoplasm
     Dosage: UNK
     Route: 065
  2. MARQIBO [Concomitant]
     Active Substance: VINCRISTINE SULFATE
     Indication: Myeloproliferative neoplasm
     Dosage: UNK
     Route: 065
  3. DEXAMETHASONE [Concomitant]
     Active Substance: DEXAMETHASONE
     Indication: Myeloproliferative neoplasm
     Dosage: UNK
     Route: 065

REACTIONS (2)
  - Myeloproliferative neoplasm [Fatal]
  - Off label use [Unknown]
